FAERS Safety Report 11022743 (Version 2)
Quarter: 2015Q2

REPORT INFORMATION
  Report Type: Report from Study
  Country: JP (occurrence: JP)
  Receive Date: 20150413
  Receipt Date: 20150612
  Transmission Date: 20150821
  Serious: Yes (Hospitalization)
  Sender: FDA-Public Use
  Company Number: JP-NAPPMUNDI-GBR-2013-0026967

PATIENT
  Age: 67 Year
  Weight: 52 kg

DRUGS (6)
  1. BTDS 5 MG [Suspect]
     Active Substance: BUPRENORPHINE
     Dosage: 10 MCG, Q1H
     Route: 062
     Dates: start: 20130219, end: 20130326
  2. BTDS 5 MG [Suspect]
     Active Substance: BUPRENORPHINE
     Indication: ANALGESIC THERAPY
     Dosage: 5 MCG, Q1H
     Route: 062
     Dates: start: 20130422
  3. CALONAL [Concomitant]
     Active Substance: ACETAMINOPHEN
     Indication: SPINAL OSTEOARTHRITIS
     Dosage: 1 DF, UNK
     Dates: start: 20140521
  4. LYRICA [Concomitant]
     Active Substance: PREGABALIN
     Indication: SPINAL OSTEOARTHRITIS
     Dosage: 2 DF, DAILY
     Dates: start: 20120529, end: 20130801
  5. BTDS 5 MG [Suspect]
     Active Substance: BUPRENORPHINE
     Dosage: 20 MCG, UNK
     Route: 062
     Dates: start: 20130326, end: 20130326
  6. BTDS 5 MG [Suspect]
     Active Substance: BUPRENORPHINE
     Dosage: 5 MCG, Q1H
     Route: 062
     Dates: start: 20130131, end: 20130219

REACTIONS (3)
  - Somnolence [Recovering/Resolving]
  - Somnolence [Recovering/Resolving]
  - Melaena [Recovered/Resolved]

NARRATIVE: CASE EVENT DATE: 20130204
